FAERS Safety Report 20969648 (Version 2)
Quarter: 2022Q2

REPORT INFORMATION
  Report Type: Spontaneous
  Country: US (occurrence: US)
  Receive Date: 20220616
  Receipt Date: 20220617
  Transmission Date: 20220720
  Serious: No
  Sender: FDA-Public Use
  Company Number: US-BRISTOL-MYERS SQUIBB COMPANY-2022-053779

PATIENT
  Age: 72 Year
  Sex: Male

DRUGS (2)
  1. REVLIMID [Suspect]
     Active Substance: LENALIDOMIDE
     Indication: Malignant melanoma
     Route: 048
     Dates: start: 20210202
  2. REVLIMID [Suspect]
     Active Substance: LENALIDOMIDE
     Indication: Stem cell transplant

REACTIONS (1)
  - Intentional product use issue [Unknown]
